FAERS Safety Report 10279988 (Version 5)
Quarter: 2014Q3

REPORT INFORMATION
  Report Type: Report from Study
  Country: US (occurrence: US)
  Receive Date: 20140707
  Receipt Date: 20140815
  Transmission Date: 20150326
  Serious: Yes (Death, Hospitalization)
  Sender: FDA-Public Use
  Company Number: US-SA-2014SA085894

PATIENT
  Age: 57 Year
  Sex: Female
  Weight: 81.3 kg

DRUGS (35)
  1. ZOFRAN [Concomitant]
     Active Substance: ONDANSETRON HYDROCHLORIDE
  2. DOPAMINE [Concomitant]
     Active Substance: DOPAMINE\DOPAMINE HYDROCHLORIDE
     Route: 041
     Dates: end: 20140622
  3. MAXIPIME [Concomitant]
     Active Substance: CEFEPIME HYDROCHLORIDE
  4. ACYCLOVIR. [Concomitant]
     Active Substance: ACYCLOVIR
  5. DILAUDID [Concomitant]
     Active Substance: HYDROMORPHONE HYDROCHLORIDE
  6. POSACONAZOLE [Concomitant]
     Active Substance: POSACONAZOLE
  7. CLOFARABINE [Suspect]
     Active Substance: CLOFARABINE
     Indication: BONE MARROW CONDITIONING REGIMEN
     Route: 042
     Dates: start: 20140611, end: 20140615
  8. ZYVOX [Concomitant]
     Active Substance: LINEZOLID
  9. CLINDAMYCIN [Concomitant]
     Active Substance: CLINDAMYCIN\CLINDAMYCIN PHOSPHATE
  10. MICAFUNGIN [Concomitant]
     Active Substance: MICAFUNGIN
  11. CALCIUM [Concomitant]
     Active Substance: CALCIUM
  12. MEROPENEM. [Concomitant]
     Active Substance: MEROPENEM
  13. ALBUMIN [Concomitant]
     Active Substance: ALBUMIN (HUMAN)
  14. MELPHALAN [Suspect]
     Active Substance: MELPHALAN
     Indication: BONE MARROW CONDITIONING REGIMEN
     Route: 042
     Dates: start: 20140616, end: 20140616
  15. ATROVENT [Concomitant]
     Active Substance: IPRATROPIUM BROMIDE
  16. ACTIGALL [Concomitant]
     Active Substance: URSODIOL
  17. SILVADENE [Concomitant]
     Active Substance: SILVER SULFADIAZINE
     Dosage: FOR HANDS
  18. CLOFARABINE [Suspect]
     Active Substance: CLOFARABINE
     Indication: BONE MARROW CONDITIONING REGIMEN
     Route: 042
     Dates: start: 20140611, end: 20140615
  19. PROPOFOL. [Concomitant]
     Active Substance: PROPOFOL
  20. LEVOPHED [Concomitant]
     Active Substance: NOREPINEPHRINE BITARTRATE
     Dates: start: 2014
  21. STOOL SOFTENER [Concomitant]
     Active Substance: DOCUSATE CALCIUM
  22. DOBUTAMINE [Concomitant]
     Active Substance: DOBUTAMINE\DOBUTAMINE HYDROCHLORIDE
     Route: 042
     Dates: start: 20140618, end: 20140618
  23. XOPENEX [Concomitant]
     Active Substance: LEVALBUTEROL HYDROCHLORIDE
  24. SIROLIMUS. [Concomitant]
     Active Substance: SIROLIMUS
  25. MIRALAX [Concomitant]
     Active Substance: POLYETHYLENE GLYCOL 3350
  26. ABELCET [Concomitant]
     Active Substance: AMPHOTERICIN B\DIMYRISTOYLPHOSPHATIDYLCHOLINE, DL-\DIMYRISTOYLPHOSPHATIDYLGLYCEROL, DL-
  27. DECITABINE. [Concomitant]
     Active Substance: DECITABINE
     Dates: start: 20140507, end: 20140516
  28. CELLCEPT [Concomitant]
     Active Substance: MYCOPHENOLATE MOFETIL\MYCOPHENOLATE MOFETIL HYDROCHLORIDE
  29. BUMEX [Concomitant]
     Active Substance: BUMETANIDE
     Route: 041
     Dates: start: 20140619
  30. PROTONIX [Concomitant]
     Active Substance: PANTOPRAZOLE SODIUM
  31. EPINEPHRINE. [Concomitant]
     Active Substance: EPINEPHRINE
  32. ATROPINE [Concomitant]
     Active Substance: ATROPINE
  33. ALL OTHER THERAPEUTIC PRODUCTS [Concomitant]
     Active Substance: UNSPECIFIED INGREDIENT
  34. PEPCID [Concomitant]
     Active Substance: FAMOTIDINE
  35. URSODIOL. [Concomitant]
     Active Substance: URSODIOL

REACTIONS (2)
  - Sepsis [Fatal]
  - Respiratory failure [Not Recovered/Not Resolved]

NARRATIVE: CASE EVENT DATE: 20140620
